FAERS Safety Report 12115329 (Version 1)
Quarter: 2016Q1

REPORT INFORMATION
  Report Type: Spontaneous
  Country: ZA (occurrence: ZA)
  Receive Date: 20160225
  Receipt Date: 20160225
  Transmission Date: 20160526
  Serious: Yes (Death, Hospitalization, Other)
  Sender: FDA-Public Use
  Company Number: ZA-ASTRAZENECA-2016SE15600

PATIENT
  Age: 27433 Day
  Sex: Female
  Weight: 115 kg

DRUGS (2)
  1. BRILINTA [Suspect]
     Active Substance: TICAGRELOR
     Indication: VASCULAR STENT THROMBOSIS
     Route: 048
  2. BRILINTA [Suspect]
     Active Substance: TICAGRELOR
     Indication: TREATMENT FAILURE
     Route: 048

REACTIONS (6)
  - Sepsis [Unknown]
  - Hypotension [Unknown]
  - Rectal haemorrhage [Fatal]
  - Multiple organ dysfunction syndrome [Fatal]
  - Bradycardia [Unknown]
  - Vaginal haemorrhage [Fatal]

NARRATIVE: CASE EVENT DATE: 20160202
